FAERS Safety Report 15133980 (Version 1)
Quarter: 2018Q3

REPORT INFORMATION
  Report Type: Spontaneous
  Country: BR (occurrence: BR)
  Receive Date: 20180712
  Receipt Date: 20180712
  Transmission Date: 20181010
  Serious: Yes (Disabling, Other)
  Sender: FDA-Public Use
  Company Number: BR-SA-2018SA179202

PATIENT
  Age: 76 Year
  Sex: Female
  Weight: 47 kg

DRUGS (2)
  1. LANTUS SOLOSTAR [Suspect]
     Active Substance: INSULIN GLARGINE
     Indication: TYPE 2 DIABETES MELLITUS
     Dosage: 22 U, IN MORNING
     Route: 058
  2. METFORMIN [Concomitant]
     Active Substance: METFORMIN HYDROCHLORIDE
     Indication: DIABETES MELLITUS
     Dosage: 1 DF, AT NIGHT
     Route: 048

REACTIONS (4)
  - Glaucoma [Unknown]
  - Surgery [Unknown]
  - Diabetes mellitus management [Unknown]
  - Blood glucose fluctuation [Recovering/Resolving]
